FAERS Safety Report 19170855 (Version 1)
Quarter: 2021Q2

REPORT INFORMATION
  Report Type: Report from Study
  Country: None (occurrence: SE)
  Receive Date: 20210423
  Receipt Date: 20210423
  Transmission Date: 20210717
  Serious: Yes (Hospitalization)
  Sender: FDA-Public Use
  Company Number: SE-ABBVIE-19K-150-2972721-00

PATIENT
  Sex: Male
  Weight: 66 kg

DRUGS (6)
  1. DUODOPA [Suspect]
     Active Substance: CARBIDOPA\LEVODOPA
     Indication: PARKINSON^S DISEASE
     Route: 050
     Dates: start: 20140922
  2. VITAMIN B12 [Concomitant]
     Active Substance: CYANOCOBALAMIN
     Indication: PRODUCT USED FOR UNKNOWN INDICATION
  3. DUODOPA [Suspect]
     Active Substance: CARBIDOPA\LEVODOPA
     Dosage: MORNING DOSE DECREASED FROM 5ML TO 4.5ML.
     Route: 050
     Dates: start: 20210413, end: 20210413
  4. DUODOPA [Suspect]
     Active Substance: CARBIDOPA\LEVODOPA
     Dosage: CURRENT DOSAGE: CONTINUOUS DOSE: 3.0 ML/H, EXTRA DOSE: 2.0 ML.
     Route: 050
     Dates: start: 20210413
  5. IMOVANE [Concomitant]
     Active Substance: ZOPICLONE
     Indication: PRODUCT USED FOR UNKNOWN INDICATION
  6. DUODOPA [Suspect]
     Active Substance: CARBIDOPA\LEVODOPA
     Route: 050
     Dates: start: 20141106

REACTIONS (14)
  - Kidney infection [Recovered/Resolved]
  - On and off phenomenon [Not Recovered/Not Resolved]
  - Nightmare [Recovered/Resolved]
  - Hyperkinesia [Not Recovered/Not Resolved]
  - Musculoskeletal stiffness [Not Recovered/Not Resolved]
  - On and off phenomenon [Unknown]
  - Dystonia [Unknown]
  - Weight decreased [Not Recovered/Not Resolved]
  - Pain in jaw [Unknown]
  - Parkinson^s disease [Unknown]
  - Urinary tract infection [Recovered/Resolved]
  - Hypophagia [Unknown]
  - Dysphagia [Unknown]
  - Mastication disorder [Unknown]
